FAERS Safety Report 7391352-1 (Version None)
Quarter: 2011Q2

REPORT INFORMATION
  Report Type: 
  Country: None (occurrence: None)
  Receive Date: 20110404
  Receipt Date: 20110323
  Transmission Date: 20111010
  Serious: Yes (Death, Life-Threatening, Hospitalization)
  Sender: FDA-Public Use
  Company Number: US-BRISTOL-MYERS SQUIBB COMPANY-15633308

PATIENT
  Age: 78 Year
  Sex: Female

DRUGS (11)
  1. ROSUVASTATIN [Concomitant]
  2. INDAPAMIDE [Concomitant]
  3. ERGOCALCIFEROL [Concomitant]
  4. METFORMIN HCL [Suspect]
     Dosage: 850 MG
     Route: 048
  5. NATEGLINIDE [Concomitant]
     Dosage: BEFORE BREAKFAST
  6. METOPROLOL [Concomitant]
  7. FUROSEMIDE [Concomitant]
  8. RISEDRONATE SODIUM [Concomitant]
     Indication: OSTEOPOROSIS
  9. AMLODIPINE [Concomitant]
  10. GLIMEPIRIDE [Concomitant]
  11. ZOLEDRONIC ACID [Suspect]
     Indication: OSTEOPOROSIS
     Dosage: 1DF:5MG PER 100ML
     Route: 042

REACTIONS (2)
  - LACTIC ACIDOSIS [None]
  - RENAL FAILURE ACUTE [None]
